FAERS Safety Report 5196410-8 (Version None)
Quarter: 2006Q4

REPORT INFORMATION
  Report Type: 
  Country: None (occurrence: None)
  Receive Date: 20061222
  Receipt Date: 20061211
  Transmission Date: 20070319
  Serious: Yes (Hospitalization)
  Sender: FDA-Public Use
  Company Number: 2006002229

PATIENT
  Age: 71 Year
  Sex: Male

DRUGS (7)
  1. ERLOTINIB (TABLET) [Suspect]
     Dosage: QD ORAL
     Route: 048
     Dates: start: 20060918, end: 20061127
  2. GEMCITABINE [Suspect]
     Dosage: 1950 MG INTRAVENOUS
     Route: 042
     Dates: start: 20060904
  3. CARBOPLATIN [Suspect]
     Dosage: 450 MG INTRAVENOUS
     Route: 042
     Dates: start: 20060904
  4. TRAMADOL HCL [Concomitant]
  5. MULTI-VITAMIN [Concomitant]
  6. METOCLOPRAMIDE [Concomitant]
  7. CO AMOXICLAV (AMOXICILLIN W/CLAVULANATE POTASSIUM) [Concomitant]

REACTIONS (5)
  - ANAEMIA [None]
  - FATIGUE [None]
  - INSOMNIA [None]
  - NEUTROPHIL COUNT INCREASED [None]
  - PLATELET COUNT INCREASED [None]
